FAERS Safety Report 13910294 (Version 1)
Quarter: 2017Q3

REPORT INFORMATION
  Report Type: Spontaneous
  Country: US (occurrence: US)
  Receive Date: 20170828
  Receipt Date: 20170828
  Transmission Date: 20171127
  Serious: Yes (Other)
  Sender: FDA-Public Use
  Company Number: US-INGENUS PHARMACEUTICALS, LLC-INF201708-000386

PATIENT
  Age: 14 Year
  Sex: Male

DRUGS (11)
  1. DEXAMETHASONE. [Concomitant]
     Active Substance: DEXAMETHASONE
  2. DAUNORUBICIN [Concomitant]
     Active Substance: DAUNORUBICIN
  3. METHOTREXATE. [Concomitant]
     Active Substance: METHOTREXATE
  4. CYCLOPHOSPHAMIDE. [Concomitant]
     Active Substance: CYCLOPHOSPHAMIDE
  5. PEGASPARGASE [Concomitant]
     Active Substance: PEGASPARGASE
  6. IFOSFAMIDE. [Suspect]
     Active Substance: IFOSFAMIDE
  7. CYTARABINE. [Concomitant]
     Active Substance: CYTARABINE
  8. ETOPOSIDE. [Suspect]
     Active Substance: ETOPOSIDE
  9. MERCAPTOPURINE. [Concomitant]
     Active Substance: MERCAPTOPURINE
  10. CARBOPLATIN. [Suspect]
     Active Substance: CARBOPLATIN
  11. VINCRISTINE [Concomitant]
     Active Substance: VINCRISTINE

REACTIONS (5)
  - Acute kidney injury [Unknown]
  - Pancytopenia [Unknown]
  - Toxicity to various agents [Unknown]
  - Sepsis [Unknown]
  - Thrombosis [Unknown]
